FAERS Safety Report 4761256-9 (Version None)
Quarter: 2005Q3

REPORT INFORMATION
  Report Type: 
  Country: None (occurrence: None)
  Receive Date: 20050901
  Receipt Date: 20050822
  Transmission Date: 20060218
  Serious: Yes (Life-Threatening)
  Sender: FDA-Public Use
  Company Number: 2005EU001878

PATIENT
  Age: 64 Year
  Sex: Male

DRUGS (4)
  1. TACROLIMUS(TACROLIMUS) [Suspect]
     Indication: LIVER TRANSPLANT
  2. DACLIZUMAB (DACLIZUMAB) [Suspect]
     Indication: LIVER TRANSPLANT
     Dosage: 184.00 MG, TOTAL DOSE, IV NOS
     Route: 042
     Dates: start: 20050807, end: 20050807
  3. MYCOPHENOLATE MOFETIL (MYCOPHENOLATE MOFETIL) [Suspect]
     Indication: LIVER TRANSPLANT
     Dosage: 1000.00 MG, UID/QD, IV NOS
     Route: 042
     Dates: start: 20050807
  4. HYDROCORTISONE [Suspect]
     Indication: LIVER TRANSPLANT
     Dosage: 100.00 MG, BID,
     Dates: start: 20050807

REACTIONS (1)
  - CARDIAC ARREST [None]
